FAERS Safety Report 5673919-1 (Version None)
Quarter: 2008Q2

REPORT INFORMATION
  Report Type: 
  Country: None (occurrence: None)
  Receive Date: 20080228
  Receipt Date: 20071108
  Transmission Date: 20081010
  Serious: Yes (Other)
  Sender: FDA-Public Use
  Company Number: US200711002819

PATIENT
  Age: 42 Year
  Sex: Male

DRUGS (1)
  1. SYMBYAX [Suspect]
     Indication: BIPOLAR I DISORDER
     Dosage: 1 D/F
     Dates: start: 20071031, end: 20071103

REACTIONS (2)
  - GRAND MAL CONVULSION [None]
  - TONGUE HAEMATOMA [None]
